FAERS Safety Report 5157283-2 (Version None)
Quarter: 2006Q4

REPORT INFORMATION
  Report Type: 
  Country: None (occurrence: None)
  Receive Date: 20061127
  Receipt Date: 20060619
  Transmission Date: 20070319
  Serious: Yes (Hospitalization)
  Sender: FDA-Public Use
  Company Number: US-BRISTOL-MYERS SQUIBB COMPANY-13416599

PATIENT
  Age: 72 Year
  Sex: Male

DRUGS (14)
  1. COUMADIN [Suspect]
     Indication: ATRIAL FIBRILLATION
     Route: 048
     Dates: start: 20051201
  2. PREDNISOLONE [Concomitant]
  3. ADVAIR DISKUS 100/50 [Concomitant]
  4. COMBIVENT [Concomitant]
  5. OMEPRAZOLE [Concomitant]
  6. DIOVAN [Concomitant]
  7. PRAVACHOL [Concomitant]
  8. CENTRUM SILVER [Concomitant]
  9. ALLEGRA [Concomitant]
  10. COMPAZINE [Concomitant]
  11. CARDIZEM [Concomitant]
  12. DIGITEK [Concomitant]
  13. CENTRUM SILVER [Concomitant]
  14. ASCORBIC ACID [Concomitant]

REACTIONS (6)
  - AGEUSIA [None]
  - ANOSMIA [None]
  - DYSGEUSIA [None]
  - MALNUTRITION [None]
  - MOVEMENT DISORDER [None]
  - WEIGHT DECREASED [None]
